FAERS Safety Report 6083705-9 (Version None)
Quarter: 2009Q1

REPORT INFORMATION
  Report Type: 
  Country: None (occurrence: None)
  Receive Date: 20090217
  Receipt Date: 20090217
  Transmission Date: 20090719
  Serious: Yes (Other)
  Sender: FDA-Public Use
  Company Number: None

PATIENT

DRUGS (2)
  1. FLUOXETINE [Suspect]
     Indication: ANXIETY DISORDER
  2. FLUOXETINE [Suspect]
     Indication: OBSESSIVE-COMPULSIVE DISORDER

REACTIONS (1)
  - DRUG INEFFECTIVE [None]
